FAERS Safety Report 7525207-6 (Version None)
Quarter: 2011Q2

REPORT INFORMATION
  Report Type: 
  Country: None (occurrence: None)
  Receive Date: 20110602
  Receipt Date: 20110602
  Transmission Date: 20111010
  Serious: Yes (Hospitalization)
  Sender: FDA-Public Use
  Company Number: None

PATIENT
  Sex: Male
  Weight: 101.1 kg

DRUGS (2)
  1. RITUXIMAB [Suspect]
     Indication: MANTLE CELL LYMPHOMA
     Dosage: 375 MG/M2; 784 MG X1 EVERY 12 WEEKS IV MAINTENANCE CYCLE #12
     Route: 042
     Dates: start: 20101215
  2. SIMVASTATIN [Concomitant]

REACTIONS (5)
  - T-CELL LYMPHOMA [None]
  - HYPOTENSION [None]
  - RASH [None]
  - LEUKOCYTOSIS [None]
  - METASTASIS [None]
